FAERS Safety Report 8019185-3 (Version None)
Quarter: 2011Q4

REPORT INFORMATION
  Report Type: 
  Country: None (occurrence: None)
  Receive Date: 20111227
  Receipt Date: 20111222
  Transmission Date: 20120403
  Serious: Yes (Other)
  Sender: FDA-Public Use
  Company Number: DKLU1070145

PATIENT
  Age: 11 Year
  Sex: Female

DRUGS (1)
  1. SABRIL [Suspect]
     Indication: INFANTILE SPASMS
     Dosage: 750 MILLIGRAM(S), 2 IN 1 D, ORAL
     Route: 048

REACTIONS (1)
  - CONVULSION [None]
